FAERS Safety Report 24558284 (Version 3)
Quarter: 2024Q4

REPORT INFORMATION
  Report Type: Spontaneous
  Country: US (occurrence: US)
  Receive Date: 20241029
  Receipt Date: 20241119
  Transmission Date: 20250114
  Serious: No
  Sender: ABBVIE
  Company Number: US-ABBVIE-5976378

PATIENT
  Age: 67 Year
  Sex: Female

DRUGS (1)
  1. BOTOX [Suspect]
     Active Substance: ONABOTULINUMTOXINA
     Indication: Migraine
     Dosage: TIME INTERVAL: AS NECESSARY: 30-40 INTERNATIONAL UNITS
     Route: 030
     Dates: start: 20241008, end: 20241008

REACTIONS (6)
  - Limb crushing injury [Not Recovered/Not Resolved]
  - Muscular weakness [Unknown]
  - Pain in jaw [Not Recovered/Not Resolved]
  - Migraine [Not Recovered/Not Resolved]
  - Neck crushing [Not Recovered/Not Resolved]
  - Paradoxical drug reaction [Not Recovered/Not Resolved]

NARRATIVE: CASE EVENT DATE: 20241001
